FAERS Safety Report 24402142 (Version 1)
Quarter: 2024Q4

REPORT INFORMATION
  Report Type: Spontaneous
  Country: US (occurrence: US)
  Receive Date: 20241007
  Receipt Date: 20241007
  Transmission Date: 20250115
  Serious: No
  Sender: DR REDDYS
  Company Number: None

PATIENT
  Age: 5 Decade
  Sex: Female

DRUGS (2)
  1. TAMOXIFEN [Suspect]
     Active Substance: TAMOXIFEN
     Indication: Product used for unknown indication
  2. GOSERELIN [Concomitant]
     Active Substance: GOSERELIN
     Indication: Therapeutic ovarian suppression

REACTIONS (3)
  - Libido decreased [Unknown]
  - Vulvovaginal pruritus [Unknown]
  - Hot flush [Unknown]
